FAERS Safety Report 4836175-X (Version None)
Quarter: 2005Q4

REPORT INFORMATION
  Report Type: 
  Country: None (occurrence: None)
  Receive Date: 20051121
  Receipt Date: 20051121
  Transmission Date: 20060501
  Serious: Yes (Other)
  Sender: FDA-Public Use
  Company Number: None

PATIENT
  Age: 55 Year
  Sex: Female
  Weight: 54.4316 kg

DRUGS (1)
  1. CYMBALTA [Suspect]
     Indication: FIBROMYALGIA
     Dosage: 1 CAPSULE   DAILY
     Dates: start: 20040814, end: 20051117

REACTIONS (4)
  - DIFFICULTY IN WALKING [None]
  - DIZZINESS [None]
  - IMPAIRED DRIVING ABILITY [None]
  - VISION BLURRED [None]
